FAERS Safety Report 7398090 (Version 4)
Quarter: 2013Q4

REPORT INFORMATION
  Report Type: Spontaneous
  Country: JP (occurrence: JP)
  Receive Date: 20100525
  Receipt Date: 20131025
  Transmission Date: 20140711
  Serious: Yes (Hospitalization)
  Sender: FDA-Public Use
  Company Number: JP-JNJFOC-20100507252

PATIENT
  Age: 57 Year
  Sex: Female
  Weight: 50 kg

DRUGS (8)
  1. REMICADE [Suspect]
     Indication: RHEUMATOID ARTHRITIS
     Dosage: 8 INFUSIONS ON UNKNOWN DATES
     Route: 042
     Dates: start: 20100423
  2. REMICADE [Suspect]
     Indication: RHEUMATOID ARTHRITIS
     Dosage: TOTAL OF 9 INFUSIONS
     Route: 042
     Dates: start: 20090317
  3. METHOTREXATE [Suspect]
     Indication: RHEUMATOID ARTHRITIS
     Route: 048
     Dates: start: 20090103
  4. METHOTREXATE [Suspect]
     Indication: RHEUMATOID ARTHRITIS
     Route: 048
     Dates: start: 20090206, end: 20100413
  5. ISONIAZID [Concomitant]
     Indication: ANTIBIOTIC PROPHYLAXIS
     Route: 065
  6. ISCOTIN [Concomitant]
     Indication: ANTIBIOTIC PROPHYLAXIS
     Route: 048
     Dates: start: 20090312, end: 20090612
  7. PENTCILLIN [Concomitant]
     Route: 065
     Dates: start: 20100506
  8. OTHER THERAPEUTICS [Concomitant]
     Route: 065

REACTIONS (3)
  - Tuberculosis gastrointestinal [Recovered/Resolved]
  - Pulmonary tuberculosis [Recovered/Resolved]
  - Peritoneal tuberculosis [Recovered/Resolved]
